FAERS Safety Report 14497817 (Version 3)
Quarter: 2018Q3

REPORT INFORMATION
  Report Type: Report from Study
  Country: JP (occurrence: JP)
  Receive Date: 20180207
  Receipt Date: 20180903
  Transmission Date: 20181010
  Serious: Yes (Life-Threatening, Hospitalization, Other)
  Sender: FDA-Public Use
  Company Number: JP-ACTELION-A-CH2017-162229

PATIENT
  Age: 46 Year
  Sex: Female
  Weight: 44 kg

DRUGS (29)
  1. ALDACTONE A [Concomitant]
     Active Substance: SPIRONOLACTONE
     Indication: PRODUCT USED FOR UNKNOWN INDICATION
     Dosage: 50 MG, OD
     Route: 048
     Dates: start: 20170719
  2. UPTRAVI [Suspect]
     Active Substance: SELEXIPAG
     Dosage: 1 MG, BID
     Route: 048
     Dates: start: 20170628, end: 20170926
  3. LASIX [Concomitant]
     Active Substance: FUROSEMIDE
     Indication: CARDIAC FAILURE
     Dosage: 40 MG, OD
     Route: 048
     Dates: start: 201505
  4. EPOPROSTENOL ACT [Suspect]
     Active Substance: EPOPROSTENOL
     Indication: PULMONARY ARTERIAL HYPERTENSION
     Dosage: UNK
     Route: 042
     Dates: start: 20161129
  5. VIBRAMYCIN [Suspect]
     Active Substance: DOXYCYCLINE
     Dosage: 200 MG, OD
     Route: 048
     Dates: start: 20170817, end: 20170904
  6. FAROPENEM SODIUM [Suspect]
     Active Substance: FAROPENEM SODIUM
     Indication: DEVICE RELATED INFECTION
     Dosage: 400 MG, UNK
     Route: 048
     Dates: start: 20170810, end: 20170811
  7. UPTRAVI [Suspect]
     Active Substance: SELEXIPAG
     Dosage: 0.6 MG, BID
     Route: 048
     Dates: start: 20170531, end: 20170613
  8. VIBRAMYCIN [Suspect]
     Active Substance: DOXYCYCLINE
     Indication: DEVICE RELATED INFECTION
     Dosage: 200 MG, OD
     Route: 048
     Dates: start: 20170713
  9. AVELOX [Suspect]
     Active Substance: MOXIFLOXACIN HYDROCHLORIDE
     Dosage: 400 MG, QD
     Route: 048
     Dates: start: 20170911, end: 20170915
  10. UPTRAVI [Suspect]
     Active Substance: SELEXIPAG
     Indication: PULMONARY ARTERIAL HYPERTENSION
     Dosage: 0.2 MG, BID
     Route: 048
     Dates: start: 20170428, end: 20170516
  11. CLARITH [Suspect]
     Active Substance: CLARITHROMYCIN
     Indication: DEVICE RELATED INFECTION
     Dosage: 800 MG, OD
     Route: 048
     Dates: start: 20170713
  12. CLARITH [Suspect]
     Active Substance: CLARITHROMYCIN
     Dosage: 800 MG, OD
     Route: 048
     Dates: start: 20170721, end: 20170904
  13. OPSUMIT [Concomitant]
     Active Substance: MACITENTAN
     Indication: PULMONARY ARTERIAL HYPERTENSION
     Dosage: 10 MG, OD
     Route: 048
     Dates: start: 201512
  14. DAIKENCHUTO [Concomitant]
     Active Substance: HERBALS
     Indication: PRODUCT USED FOR UNKNOWN INDICATION
     Dosage: 7.5 GR, OD
     Route: 048
     Dates: start: 20170802
  15. UPTRAVI [Suspect]
     Active Substance: SELEXIPAG
     Dosage: 0.8 MG, BID
     Route: 048
     Dates: start: 20170614, end: 20170627
  16. UPTRAVI [Suspect]
     Active Substance: SELEXIPAG
     Dosage: 1.2 MG, BID
     Route: 048
     Dates: start: 20170927, end: 20171010
  17. VIBRAMYCIN [Suspect]
     Active Substance: DOXYCYCLINE
     Dosage: 200 MG, OD
     Route: 048
     Dates: start: 20170915, end: 20171127
  18. MEROPEN [Suspect]
     Active Substance: MEROPENEM
     Indication: DEVICE RELATED INFECTION
     Dosage: 1 G, UNK
     Route: 042
     Dates: start: 20170721, end: 20170802
  19. ADEMPAS [Concomitant]
     Active Substance: RIOCIGUAT
     Indication: PULMONARY ARTERIAL HYPERTENSION
     Dosage: 7.5 MG, OD
     Route: 048
     Dates: start: 201512
  20. PARIET [Concomitant]
     Active Substance: RABEPRAZOLE SODIUM
     Indication: PRODUCT USED FOR UNKNOWN INDICATION
     Dosage: 10 MG, OD
     Route: 048
     Dates: start: 20170719
  21. CEFAZOLIN SODIUM. [Suspect]
     Active Substance: CEFAZOLIN SODIUM
     Indication: DEVICE RELATED INFECTION
     Dosage: UNK
     Route: 042
     Dates: start: 20170704, end: 20170721
  22. AVELOX [Suspect]
     Active Substance: MOXIFLOXACIN HYDROCHLORIDE
     Indication: DEVICE RELATED INFECTION
     Dosage: 400 MG, QD
     Route: 048
     Dates: start: 20170817, end: 20170904
  23. FERROMIA [Concomitant]
     Active Substance: SODIUM FERROUS CITRATE
     Indication: PRODUCT USED FOR UNKNOWN INDICATION
     Dosage: 50 MG, OD
     Route: 048
     Dates: start: 20161220
  24. BIOFERMIN [Concomitant]
     Active Substance: BACILLUS SUBTILIS\LACTOBACILLUS ACIDOPHILUS\STREPTOCOCCUS FAECAIS
     Indication: PRODUCT USED FOR UNKNOWN INDICATION
     Dosage: 3 GR, OD
     Route: 048
     Dates: start: 20170314
  25. UPTRAVI [Suspect]
     Active Substance: SELEXIPAG
     Dosage: 0.4 MG, BID
     Route: 048
     Dates: start: 20170517, end: 20170530
  26. UPTRAVI [Suspect]
     Active Substance: SELEXIPAG
     Dosage: 1.4 MG, BID
     Route: 048
     Dates: start: 20171011
  27. CLARITH [Suspect]
     Active Substance: CLARITHROMYCIN
     Dosage: 800 MG, OD
     Route: 048
     Dates: start: 20170911, end: 20171127
  28. AMIKACIN SULFATE. [Suspect]
     Active Substance: AMIKACIN SULFATE
     Indication: DEVICE RELATED INFECTION
     Dosage: 600 MG, QD
     Route: 042
     Dates: start: 20170721, end: 20170817
  29. IMIPENEM [Suspect]
     Active Substance: IMIPENEM
     Indication: DEVICE RELATED INFECTION
     Dosage: 1 G, QD
     Route: 042
     Dates: start: 20170803, end: 20170810

REACTIONS (8)
  - Tachycardia [Recovered/Resolved]
  - Pancytopenia [Recovering/Resolving]
  - Device related infection [Recovered/Resolved]
  - Urticaria [Recovering/Resolving]
  - Abdominal pain [Recovering/Resolving]
  - Drug eruption [Recovered/Resolved]
  - Atypical mycobacterial infection [Recovered/Resolved]
  - Nausea [Recovering/Resolving]

NARRATIVE: CASE EVENT DATE: 20170516
